FAERS Safety Report 15631991 (Version 1)
Quarter: 2018Q4

REPORT INFORMATION
  Report Type: Spontaneous
  Country: US (occurrence: US)
  Receive Date: 20181118
  Receipt Date: 20181118
  Transmission Date: 20190205
  Serious: Yes (Disabling)
  Sender: FDA-Public Use
  Company Number: None

PATIENT
  Age: 36 Year
  Sex: Female
  Weight: 94.5 kg

DRUGS (8)
  1. AIMOVIG [Suspect]
     Active Substance: ERENUMAB-AOOE
     Indication: MIGRAINE
     Dosage: ?          QUANTITY:1 INJECTION(S);OTHER FREQUENCY:1X/MONTH;?
     Route: 030
     Dates: start: 20180925, end: 20181112
  2. LAMICTAL [Concomitant]
     Active Substance: LAMOTRIGINE
  3. SYNTHROID [Concomitant]
     Active Substance: LEVOTHYROXINE SODIUM
  4. FOLIC ACID. [Concomitant]
     Active Substance: FOLIC ACID
  5. TOPIRAMATE. [Concomitant]
     Active Substance: TOPIRAMATE
  6. TROKENDI XR [Concomitant]
     Active Substance: TOPIRAMATE
  7. XANAX [Concomitant]
     Active Substance: ALPRAZOLAM
  8. MAGNESIUM [Concomitant]
     Active Substance: MAGNESIUM

REACTIONS (10)
  - Myalgia [None]
  - Drug interaction [None]
  - Weight increased [None]
  - Muscle spasms [None]
  - Depression [None]
  - Decreased appetite [None]
  - Anxiety [None]
  - Insomnia [None]
  - Irritable bowel syndrome [None]
  - Dysgeusia [None]

NARRATIVE: CASE EVENT DATE: 20180925
